FAERS Safety Report 23977914 (Version 2)
Quarter: 2024Q2

REPORT INFORMATION
  Report Type: Spontaneous
  Country: CN (occurrence: CN)
  Receive Date: 20240614
  Receipt Date: 20240620
  Transmission Date: 20240716
  Serious: Yes (Hospitalization)
  Sender: FDA-Public Use
  Company Number: CN-TAKEDA-2024TUS057101

PATIENT
  Age: 30 Year
  Sex: Female
  Weight: 65 kg

DRUGS (12)
  1. BRENTUXIMAB VEDOTIN [Suspect]
     Active Substance: BRENTUXIMAB VEDOTIN
     Indication: Hodgkin^s disease
     Dosage: 100 MILLIGRAM, QD
     Route: 041
     Dates: start: 20240502, end: 20240502
  2. ETOPOSIDE [Suspect]
     Active Substance: ETOPOSIDE
     Indication: Hodgkin^s disease
     Dosage: 0.3 GRAM, QD
     Route: 041
     Dates: start: 20240503, end: 20240505
  3. CYCLOPHOSPHAMIDE [Suspect]
     Active Substance: CYCLOPHOSPHAMIDE
     Indication: Hodgkin^s disease
     Dosage: 2.1 GRAM, QD
     Route: 041
     Dates: start: 20240503, end: 20240503
  4. PIRARUBICIN HYDROCHLORIDE [Suspect]
     Active Substance: PIRARUBICIN HYDROCHLORIDE
     Indication: Hodgkin^s disease
     Dosage: 60 MILLIGRAM, QD
     Route: 041
     Dates: start: 20240503, end: 20240503
  5. VINDESINE SULFATE [Suspect]
     Active Substance: VINDESINE SULFATE
     Indication: Hodgkin^s disease
     Dosage: 4 MILLIGRAM, QD
     Route: 041
     Dates: start: 20240510, end: 20240510
  6. MESNA [Suspect]
     Active Substance: MESNA
     Indication: Hodgkin^s disease
     Dosage: 0.4 GRAM, TID
     Route: 042
     Dates: start: 20240503, end: 20240503
  7. SODIUM CHLORIDE [Concomitant]
     Active Substance: SODIUM CHLORIDE
     Dosage: 150 MILLILITER, QD
     Route: 041
     Dates: start: 20240502, end: 20240502
  8. SODIUM CHLORIDE [Concomitant]
     Active Substance: SODIUM CHLORIDE
     Dosage: 10 MILLILITER, QD
     Route: 041
     Dates: start: 20240503, end: 20240503
  9. SODIUM CHLORIDE [Concomitant]
     Active Substance: SODIUM CHLORIDE
     Dosage: 250 MILLILITER, QD
     Route: 041
     Dates: start: 20240503, end: 20240503
  10. SODIUM CHLORIDE [Concomitant]
     Active Substance: SODIUM CHLORIDE
     Dosage: 250 MILLILITER, QD
     Route: 041
     Dates: start: 20240503, end: 20240505
  11. SODIUM CHLORIDE [Concomitant]
     Active Substance: SODIUM CHLORIDE
     Dosage: 50 MILLILITER, QD
     Route: 041
     Dates: start: 20240510, end: 20240510
  12. DEXTROSE [Concomitant]
     Active Substance: DEXTROSE\DEXTROSE MONOHYDRATE
     Dosage: 100 MILLILITER, QD
     Route: 041
     Dates: start: 20240503, end: 20240503

REACTIONS (1)
  - Myelosuppression [Recovering/Resolving]

NARRATIVE: CASE EVENT DATE: 20240511
